FAERS Safety Report 25421466 (Version 1)
Quarter: 2025Q2

REPORT INFORMATION
  Report Type: Spontaneous
  Country: GB (occurrence: GB)
  Receive Date: 20250611
  Receipt Date: 20250611
  Transmission Date: 20250717
  Serious: Yes (Other)
  Sender: MSN LABORATORIES PRIVATE LIMITED
  Company Number: GB-MHRA-TPP14639582C8773245YC1748421643678

PATIENT

DRUGS (3)
  1. ROSUVASTATIN [Suspect]
     Active Substance: ROSUVASTATIN
     Indication: Ill-defined disorder
     Dosage: TAKE ONE TABLET ONCE DAILY TO LOWER CHOLESTEROL
     Route: 065
  2. ROSUVASTATIN [Suspect]
     Active Substance: ROSUVASTATIN
     Indication: Blood cholesterol increased
  3. ACIDEX ADVANCE [Concomitant]
     Indication: Ill-defined disorder
     Route: 065
     Dates: start: 20241014

REACTIONS (2)
  - Gastrooesophageal reflux disease [Recovering/Resolving]
  - Myalgia [Unknown]
